FAERS Safety Report 5049649-6 (Version None)
Quarter: 2006Q2

REPORT INFORMATION
  Report Type: 
  Country: None (occurrence: None)
  Receive Date: 20060614
  Receipt Date: 20060614
  Transmission Date: 20061013
  Serious: Yes (Other)
  Sender: FDA-Public Use
  Company Number: 445411

PATIENT
  Age: 73 Year
  Sex: Female
  Weight: 50.8 kg

DRUGS (6)
  1. BONIVA [Suspect]
     Indication: OSTEOPOROSIS
     Dosage: 150 MG 1 PER MONTH ORAL
     Route: 047
     Dates: start: 20051215
  2. DILANTIN [Concomitant]
  3. NEXIUM [Concomitant]
  4. SINGULAIR [Concomitant]
  5. ZOCOR [Concomitant]
  6. GLAUCOMA MEDICATION NOS (ANTIGLAUCOMA AGENT NOS) [Concomitant]

REACTIONS (2)
  - DRUG ADMINISTRATION ERROR [None]
  - HYPOAESTHESIA [None]
